FAERS Safety Report 4405287-7 (Version None)
Quarter: 2004Q3

REPORT INFORMATION
  Report Type: 
  Country: None (occurrence: None)
  Receive Date: 20040716
  Receipt Date: 20040630
  Transmission Date: 20050211
  Serious: Yes (Hospitalization)
  Sender: FDA-Public Use
  Company Number: MEDI-0002092 (0)

PATIENT
  Age: 7 Month
  Sex: Female

DRUGS (4)
  1. SYNAGIS [Suspect]
     Indication: ANTIVIRAL PROPHYLAXIS
     Dosage: 90 MG, 1 IN 30 D, INTRAMUSCULAR
     Route: 030
     Dates: start: 20031204, end: 20040108
  2. TERRAMYCIN [Concomitant]
  3. ALFACALCIDOL [Concomitant]
  4. LACTIC ACID BACTERIA [Concomitant]

REACTIONS (1)
  - BRONCHITIS [None]
